APPROVED DRUG PRODUCT: ZYCLARA
Active Ingredient: IMIQUIMOD
Strength: 2.5%
Dosage Form/Route: CREAM;TOPICAL
Application: N022483 | Product #002
Applicant: BAUSCH HEALTH US LLC
Approved: Jul 15, 2011 | RLD: Yes | RS: Yes | Type: RX

PATENTS:
Patent 11318130 | Expires: Dec 11, 2029
Patent 8222270 | Expires: Dec 11, 2029